FAERS Safety Report 11167082 (Version 1)
Quarter: 2015Q2

REPORT INFORMATION
  Report Type: Spontaneous
  Country: CA (occurrence: CA)
  Receive Date: 20150605
  Receipt Date: 20150605
  Transmission Date: 20150821
  Serious: Yes (Hospitalization)
  Sender: FDA-Public Use
  Company Number: CA-TEVA-568466ACC

PATIENT
  Age: 16 Year
  Sex: Male
  Weight: 55 kg

DRUGS (73)
  1. FLUDARABINE [Concomitant]
     Active Substance: FLUDARABINE PHOSPHATE
     Dosage: UNKNOWN FORM STRENGTH
     Route: 065
  2. HYDROCORTISONE. [Concomitant]
     Active Substance: HYDROCORTISONE
     Dosage: UNKNOWN FORM STRENGTH
     Route: 065
  3. MESNA. [Concomitant]
     Active Substance: MESNA
     Dosage: UNKNOWN FORM STRENGTH
     Route: 065
  4. MORPHINE SULFATE. [Concomitant]
     Active Substance: MORPHINE SULFATE
     Dosage: UNKNOWN FORM STRENGTH
     Route: 065
  5. NAPROXEN. [Concomitant]
     Active Substance: NAPROXEN
     Dosage: UNKNOWN FORM STRENGTH
     Route: 065
  6. PREGABALIN. [Concomitant]
     Active Substance: PREGABALIN
     Dosage: UNKNOWN FORM STRENGTH
     Route: 065
  7. RANITIDINE [Concomitant]
     Active Substance: RANITIDINE\RANITIDINE HYDROCHLORIDE
     Dosage: UNKNOWN FORM STRENGTH
     Route: 065
  8. VANCOMYCIN [Concomitant]
     Active Substance: VANCOMYCIN
     Dosage: UNKNOWN FORM STRENGTH
     Route: 065
  9. CANCIDAS [Concomitant]
     Active Substance: CASPOFUNGIN ACETATE
     Dosage: UNKNOWN FORM STRENGTH
     Route: 065
  10. HYDROXYZINE [Concomitant]
     Active Substance: HYDROXYZINE\HYDROXYZINE HYDROCHLORIDE
     Dosage: UNKNOWN FORM STRENGTH
     Route: 065
  11. MEROPENEM. [Concomitant]
     Active Substance: MEROPENEM
     Dosage: UNKNOWN FORM STRENGTH
     Route: 065
  12. MYCOPHENOLATE MOFETIL. [Concomitant]
     Active Substance: MYCOPHENOLATE MOFETIL
     Dosage: UNKNOWN FORM STRENGTH
     Route: 065
  13. PENICILLIN [Concomitant]
     Active Substance: PENICILLIN
     Dosage: UNKNOWN FORM STRENGTH
     Route: 065
  14. PENTAMIDINE ISETHIONATE INJ 300MG/VIAL BP [Concomitant]
     Dosage: UNKNOWN FORM STRENGTH
     Route: 065
  15. BUSULFAN [Concomitant]
     Active Substance: BUSULFAN
     Dosage: UNKNOWN FORM STRENGTH
     Route: 065
  16. CEFAZOLIN FOR INJECTION, USP [Concomitant]
     Active Substance: CEFAZOLIN SODIUM
     Dosage: UNKNOWN FORM STRENGTH
     Route: 065
  17. CEPHALEXIN. [Concomitant]
     Active Substance: CEPHALEXIN
     Dosage: UNKNOWN FORM STRENGTH
     Route: 065
  18. CETIRIZINE [Concomitant]
     Active Substance: CETIRIZINE HYDROCHLORIDE
     Dosage: UNKNOWN FORM STRENGTH
     Route: 065
  19. METHYLPREDNISOLONE NOS [Concomitant]
     Active Substance: METHYLPREDNISOLONE OR METHYLPREDNISOLONE ACETATE
     Dosage: UNKNOWN FORM STRENGTH
     Route: 065
  20. SULFAMETHOXAZOLE-TRIMETHOPRIM (SMZ) [Suspect]
     Active Substance: SULFAMETHOXAZOLE\TRIMETHOPRIM
     Dosage: UNKNOWN FORM STRENGTH
     Route: 065
  21. CHOLECALCIFEROL [Concomitant]
     Active Substance: CHOLECALCIFEROL
     Dosage: UNKNOWN FORM STRENGTH
     Route: 065
  22. CYCLOPHOSPHAMIDE. [Concomitant]
     Active Substance: CYCLOPHOSPHAMIDE
     Dosage: UNKNOWN FORM STRENGTH
     Route: 065
  23. CYCLOSPORINE. [Concomitant]
     Active Substance: CYCLOSPORINE
     Dosage: UNKNOWN FORM STRENGTH
     Route: 065
  24. LEUCOVORIN [Concomitant]
     Active Substance: LEUCOVORIN
     Dosage: UNKNOWN FORM STRENGTH
     Route: 065
  25. MAGNESIUM [Concomitant]
     Active Substance: MAGNESIUM
     Dosage: UNKNOWN FORM STRENGTH
     Route: 065
  26. MITOXANTRONE INJECTION [Concomitant]
     Dosage: UNKNOWN FORM STRENGTH
     Route: 065
  27. OMEPRAZOLE. [Concomitant]
     Active Substance: OMEPRAZOLE
     Dosage: UNKNOWN FORM STRENGTH
     Route: 065
  28. ONDANSETRON [Concomitant]
     Active Substance: ONDANSETRON
     Dosage: UNKNOWN FORM STRENGTH
     Route: 065
  29. TAMIFLU [Concomitant]
     Active Substance: OSELTAMIVIR PHOSPHATE
     Dosage: UNKNOWN FORM STRENGTH
     Route: 065
  30. TOBRAMYCIN INJECTION USP [Concomitant]
     Dosage: UNKNOWN FORM STRENGTH
     Route: 065
  31. CEFTAZIDIME FOR INJECTION, USP [Concomitant]
     Dosage: UNKNOWN FORM STRENGTH
     Route: 065
  32. CIPROFLOXACIN. [Concomitant]
     Active Substance: CIPROFLOXACIN
     Dosage: UNKNOWN FORM STRENGTH
     Route: 065
  33. CLAVULIN [Concomitant]
     Active Substance: AMOXICILLIN\CLAVULANIC ACID
     Dosage: UNKNOWN FORM STRENGTH
     Route: 065
  34. CYTARABINE INJECTION [Concomitant]
     Active Substance: CYTARABINE
     Dosage: UNKNOWN FORM STRENGTH
     Route: 065
  35. MAGNESIUM SULFATE. [Concomitant]
     Active Substance: MAGNESIUM SULFATE
     Dosage: UNKNOWN FORM STRENGTH
     Route: 065
  36. MELATONIN [Concomitant]
     Active Substance: MELATONIN
     Dosage: UNKNOWN FORM STRENGTH
     Route: 065
  37. MIRTAZAPINE. [Concomitant]
     Active Substance: MIRTAZAPINE
     Dosage: UNKNOWN FORM STRENGTH
     Route: 065
  38. NYSTATIN. [Concomitant]
     Active Substance: NYSTATIN
     Dosage: UNKNOWN FORM STRENGTH
     Route: 065
  39. VORICONAZOLE FOR INJECTION SINGLE DOSE VIAL. 10MG/ML AFTER RECONSTITUT [Concomitant]
     Dosage: UNKNOWN FORM STRENGTH
     Route: 065
  40. PREDNISONE. [Suspect]
     Active Substance: PREDNISONE
     Indication: ACUTE MYELOID LEUKAEMIA
     Dosage: 100 MILLIGRAM DAILY;
     Route: 048
  41. CLARITHROMYCIN. [Concomitant]
     Active Substance: CLARITHROMYCIN
     Dosage: UNKNOWN FORM STRENGTH
     Route: 065
  42. FASTURTEC [Concomitant]
     Active Substance: RASBURICASE
     Dosage: UNKNOWN FORM STRENGTH
     Route: 065
  43. GABAPENTIN. [Concomitant]
     Active Substance: GABAPENTIN
     Dosage: UNKNOWN FORM STRENGTH
     Route: 065
  44. LOSARTAN [Concomitant]
     Active Substance: LOSARTAN
     Dosage: UNKNOWN FORM STRENGTH
     Route: 065
  45. METHOTREXATE [Concomitant]
     Active Substance: METHOTREXATE
     Dosage: UNKNOWN FORM STRENGTH
     Route: 065
  46. NIFEDIPINE. [Concomitant]
     Active Substance: NIFEDIPINE
     Dosage: UNKNOWN FORM STRENGTH
     Route: 065
  47. TACROLIMUS. [Concomitant]
     Active Substance: TACROLIMUS
     Dosage: UNKNOWN FORM STRENGTH
     Route: 065
  48. URSODEOXYCHOLIC ACID [Concomitant]
     Active Substance: URSODIOL
     Dosage: UNKNOWN FORM STRENGTH
     Route: 065
  49. ZINECARD [Concomitant]
     Active Substance: DEXRAZOXANE HYDROCHLORIDE
     Dosage: UNKNOWN FORM STRENGTH
     Route: 065
  50. ZOPICLONE [Concomitant]
     Active Substance: ZOPICLONE
     Dosage: UNKNOWN FORM STRENGTH
     Route: 065
  51. AMLODIPINE [Concomitant]
     Active Substance: AMLODIPINE BESYLATE
     Dosage: UNKNOWN FORM STRENGTH
     Route: 065
  52. DAUNORUBICIN HYDROCHLORIDE FOR INJECTION [Concomitant]
     Dosage: UNKNOWN FORM STRENGTH
     Route: 065
  53. DIGOXIN. [Concomitant]
     Active Substance: DIGOXIN
     Dosage: UNKNOWN FORM STRENGTH
     Route: 065
  54. DOCUSATE [Concomitant]
     Active Substance: DOCUSATE
     Dosage: UNKNOWN FORM STRENGTH
     Route: 065
  55. LANSOPRAZOLE. [Concomitant]
     Active Substance: LANSOPRAZOLE
     Dosage: UNKNOWN FORM STRENGTH
     Route: 065
  56. NEULASTA [Concomitant]
     Active Substance: PEGFILGRASTIM
     Dosage: UNKNOWN FORM STRENGTH
     Route: 058
  57. PIPERACILLIN/TAZOBACTAM [Concomitant]
     Active Substance: PIPERACILLIN SODIUM\TAZOBACTAM SODIUM
     Dosage: UNKNOWN FORM STRENGTH
     Route: 065
  58. POTASSIUM CHLORIDE. [Concomitant]
     Active Substance: POTASSIUM CHLORIDE
     Dosage: UNKNOWN FORM STRENGTH
     Route: 065
  59. RELENZA [Concomitant]
     Active Substance: ZANAMIVIR
     Dosage: UNKNOWN FORM STRENGTH
     Route: 065
  60. SPIRONOLACTONE. [Concomitant]
     Active Substance: SPIRONOLACTONE
     Dosage: UNKNOWN FORM STRENGTH
     Route: 065
  61. ACETAMINOPHEN. [Concomitant]
     Active Substance: ACETAMINOPHEN
     Dosage: UNKNOWN FORM STRENGTH
     Route: 065
  62. ETOPOSIDE. [Concomitant]
     Active Substance: ETOPOSIDE
     Dosage: UNKNOWN FORM STRENGTH
     Route: 065
  63. FAMCICLOVIR. [Concomitant]
     Active Substance: FAMCICLOVIR
     Dosage: UNKNOWN FORM STRENGTH
     Route: 065
  64. HYDROMORPHONE [Concomitant]
     Active Substance: HYDROMORPHONE
     Dosage: UNKNOWN FORM STRENGTH
     Route: 065
  65. QUETIAPINE [Concomitant]
     Active Substance: QUETIAPINE
     Dosage: UNKNOWN FORM STRENGTH
     Route: 065
  66. ACYCLOVIR. [Concomitant]
     Active Substance: ACYCLOVIR
     Dosage: UNKNOWN FORM STRENGTH
     Route: 065
  67. ALLOPURINOL. [Concomitant]
     Active Substance: ALLOPURINOL
     Dosage: UNKNOWN FORM STRENGTH
     Route: 065
  68. ALTEPLASE [Concomitant]
     Active Substance: ALTEPLASE
     Dosage: UNKNOWN FORM STRENGTH
     Route: 065
  69. AMITRIPTYLINE [Concomitant]
     Active Substance: AMITRIPTYLINE
     Dosage: UNKNOWN FORM STRENGTH
     Route: 065
  70. AMPHOTERICIN B. [Concomitant]
     Active Substance: AMPHOTERICIN B
     Dosage: UNKNOWN FORM STRENGTH
     Route: 065
  71. CODEINE [Concomitant]
     Active Substance: CODEINE
     Dosage: UNKNOWN FORM STRENGTH
     Route: 065
  72. DESIPRAMINE [Concomitant]
     Active Substance: DESIPRAMINE
     Dosage: UNKNOWN FORM STRENGTH
     Route: 065
  73. FLUCONAZOLE. [Concomitant]
     Active Substance: FLUCONAZOLE
     Dosage: UNKNOWN FORM STRENGTH
     Route: 065

REACTIONS (1)
  - Diabetes mellitus [Recovered/Resolved]
